FAERS Safety Report 6305492-9 (Version None)
Quarter: 2009Q3

REPORT INFORMATION
  Report Type: 
  Country: None (occurrence: None)
  Receive Date: 20090811
  Receipt Date: 20090730
  Transmission Date: 20100115
  Serious: Yes (Other)
  Sender: FDA-Public Use
  Company Number: CA-TYCO HEALTHCARE/MALLINCKRODT-T200901447

PATIENT
  Age: 66 Year
  Sex: Female

DRUGS (3)
  1. FLUOXETINE [Suspect]
     Indication: DEPRESSION
     Dosage: 20 MG, UNK
  2. FLUOXETINE [Suspect]
     Dosage: 10 MG, UNK
  3. CHIPMAX [Suspect]
     Indication: SMOKING CESSATION THERAPY

REACTIONS (1)
  - TREMOR [None]
